FAERS Safety Report 8777269 (Version 4)
Quarter: 2012Q4

REPORT INFORMATION
  Report Type: 
  Country: US (occurrence: US)
  Receive Date: 20120911
  Receipt Date: 20121018
  Transmission Date: 20130627
  Serious: Yes (Other)
  Sender: FDA-Public Use
  Company Number: US-US-EMD SERONO, INC.-7159358

PATIENT
  Sex: Female

DRUGS (1)
  1. REBIF [Suspect]
     Indication: PRODUCT USED FOR UNKNOWN INDICATION
     Route: 058
     Dates: start: 20070316, end: 20120904

REACTIONS (4)
  - Idiopathic thrombocytopenic purpura [Recovered/Resolved]
  - Hypoaesthesia [Unknown]
  - Injection site erythema [Unknown]
  - Influenza like illness [Unknown]
